FAERS Safety Report 6987495-4 (Version None)
Quarter: 2010Q3

REPORT INFORMATION
  Report Type: 
  Country: None (occurrence: None)
  Receive Date: 20100916
  Receipt Date: 20100909
  Transmission Date: 20110219
  Serious: Yes (Death, Other)
  Sender: FDA-Public Use
  Company Number: PHHY2010GB60739

PATIENT
  Age: 41 Year
  Sex: Male

DRUGS (3)
  1. CLOZAPINE [Suspect]
     Dosage: 650 MG/DAY
  2. AMITRIPTYLINE HCL [Suspect]
  3. SERTRALINE HYDROCHLORIDE [Suspect]

REACTIONS (6)
  - ABDOMINAL DISTENSION [None]
  - ANTIPSYCHOTIC DRUG LEVEL INCREASED [None]
  - DRUG TOXICITY [None]
  - GASTRIC DILATATION [None]
  - PULMONARY CONGESTION [None]
  - PULMONARY OEDEMA [None]
